FAERS Safety Report 4792398-X (Version None)
Quarter: 2005Q4

REPORT INFORMATION
  Report Type: 
  Country: None (occurrence: None)
  Receive Date: 20051010
  Receipt Date: 20050921
  Transmission Date: 20060501
  Serious: Yes (Death)
  Sender: FDA-Public Use
  Company Number: 2005SE05356

PATIENT
  Age: 26566 Day
  Sex: Male

DRUGS (7)
  1. SEROQUEL [Suspect]
     Indication: CONFUSIONAL STATE
     Dosage: 1+1+1/4 TABLET/DAY
     Route: 048
     Dates: start: 20050520, end: 20050916
  2. SEROQUEL [Suspect]
     Indication: AGGRESSION
     Dosage: 1+1+1/4 TABLET/DAY
     Route: 048
     Dates: start: 20050520, end: 20050916
  3. SERENASE [Suspect]
     Indication: CONFUSIONAL STATE
     Dosage: 2.5+2.5 TABLETS/DAY
     Route: 048
     Dates: start: 20050810, end: 20050914
  4. EBIXA [Concomitant]
     Indication: DEMENTIA
     Route: 048
     Dates: start: 20050905, end: 20050916
  5. EBIXA [Concomitant]
     Indication: ABNORMAL BEHAVIOUR
     Route: 048
     Dates: start: 20050905, end: 20050916
  6. TEMESTA [Concomitant]
     Indication: ANXIETY
     Dosage: 1 MG 3 TIMES PER DAY
     Route: 048
     Dates: start: 20050622, end: 20050916
  7. DEPRAKINE [Concomitant]
     Indication: ABNORMAL BEHAVIOUR
     Route: 048
     Dates: start: 20050622, end: 20050916

REACTIONS (2)
  - FEMUR FRACTURE [None]
  - NEUROLEPTIC MALIGNANT SYNDROME [None]
